FAERS Safety Report 13322594 (Version 1)
Quarter: 2017Q1

REPORT INFORMATION
  Report Type: Spontaneous
  Country: US (occurrence: US)
  Receive Date: 20170310
  Receipt Date: 20170310
  Transmission Date: 20170428
  Serious: No
  Sender: FDA-Public Use
  Company Number: US-BAYER-2017-044112

PATIENT
  Age: 32 Year
  Sex: Female

DRUGS (1)
  1. SKYLA [Suspect]
     Active Substance: LEVONORGESTREL
     Indication: CONTRACEPTION
     Dosage: 14.5 MCG/24HR, CONT
     Route: 015
     Dates: start: 201612

REACTIONS (3)
  - Medical device monitoring error [None]
  - Weight increased [None]
  - Contraindicated device used [None]

NARRATIVE: CASE EVENT DATE: 201612
